FAERS Safety Report 4721421-3 (Version None)
Quarter: 2005Q3

REPORT INFORMATION
  Report Type: 
  Country: None (occurrence: None)
  Receive Date: 20050721
  Receipt Date: 20040824
  Transmission Date: 20060218
  Serious: No
  Sender: FDA-Public Use
  Company Number: US-BRISTOL-MYERS SQUIBB COMPANY-12681466

PATIENT
  Age: 84 Year
  Sex: Male
  Weight: 88 kg

DRUGS (7)
  1. COUMADIN [Suspect]
     Indication: ATRIAL FLUTTER
     Dosage: ADVISE TO STOP COUMADIN FOR A FEW DAYS
     Route: 048
  2. TRIAMTERENE [Concomitant]
  3. COZAAR [Concomitant]
     Route: 048
  4. LIPITOR [Concomitant]
  5. PROSCAR [Concomitant]
  6. CLARITIN [Concomitant]
  7. BETAGAN [Concomitant]
     Dosage: EYE DROPS
     Route: 047

REACTIONS (1)
  - HAEMORRHAGE [None]
